FAERS Safety Report 11916790 (Version 1)
Quarter: 2016Q1

REPORT INFORMATION
  Report Type: Report from Study
  Country: CN (occurrence: CN)
  Receive Date: 20160114
  Receipt Date: 20160114
  Transmission Date: 20160526
  Serious: Yes (Death, Other)
  Sender: FDA-Public Use
  Company Number: CN-ASTELLAS-2015US024683

PATIENT
  Age: 60 Year
  Sex: Female
  Weight: 55 kg

DRUGS (4)
  1. TEICOPLANIN [Concomitant]
     Active Substance: TEICOPLANIN
     Indication: PRODUCT USED FOR UNKNOWN INDICATION
     Route: 042
     Dates: start: 20141022, end: 20141025
  2. RECOMBINANT HUMAN INTERLEUKIN [Concomitant]
     Indication: FULL BLOOD COUNT ABNORMAL
     Route: 058
  3. MICAFUNGIN [Suspect]
     Active Substance: MICAFUNGIN
     Indication: FUNGAL INFECTION
     Route: 042
     Dates: start: 20141023, end: 20141025
  4. BIAPENEM [Concomitant]
     Active Substance: BIAPENEM
     Indication: PRODUCT USED FOR UNKNOWN INDICATION
     Dosage: 0.3 G DAILY, THRICE DAILY
     Route: 042
     Dates: start: 20141022, end: 20141025

REACTIONS (4)
  - Cardiopulmonary failure [Fatal]
  - Full blood count abnormal [Fatal]
  - Ovarian clear cell carcinoma [Fatal]
  - Lung infection [Fatal]

NARRATIVE: CASE EVENT DATE: 20141025
